FAERS Safety Report 4350807-4 (Version None)
Quarter: 2004Q2

REPORT INFORMATION
  Report Type: 
  Country: None (occurrence: None)
  Receive Date: 20040427
  Receipt Date: 20040421
  Transmission Date: 20050107
  Serious: Yes (Life-Threatening)
  Sender: FDA-Public Use
  Company Number: DSA_60415_2004

PATIENT
  Age: 7 Year
  Sex: Female
  Weight: 21.3191 kg

DRUGS (3)
  1. DIASTAT [Suspect]
     Indication: CONVULSION
     Dosage: 5 MG ONCE RC
     Route: 054
  2. POTASSIUM [Suspect]
     Dosage: 6 ML QDAY PO
     Route: 048
     Dates: start: 20040416, end: 20040421
  3. MULTI-VITAMINS [Concomitant]

REACTIONS (2)
  - PULSE PRESSURE DECREASED [None]
  - RESPIRATORY ARREST [None]
